FAERS Safety Report 7987442-2 (Version None)
Quarter: 2011Q4

REPORT INFORMATION
  Report Type: 
  Country: None (occurrence: None)
  Receive Date: 20111216
  Receipt Date: 20111027
  Transmission Date: 20120403
  Serious: No
  Sender: FDA-Public Use
  Company Number: US-BRISTOL-MYERS SQUIBB COMPANY-16201295

PATIENT
  Age: 53 Year
  Sex: Female

DRUGS (1)
  1. ABILIFY [Suspect]
     Dosage: ABILIFY TABS 10 MG -

REACTIONS (4)
  - URINARY INCONTINENCE [None]
  - RESTLESSNESS [None]
  - VISUAL IMPAIRMENT [None]
  - DYSKINESIA [None]
